FAERS Safety Report 10364040 (Version 3)
Quarter: 2015Q2

REPORT INFORMATION
  Report Type: Report from Study
  Country: ES (occurrence: ES)
  Receive Date: 20140806
  Receipt Date: 20150529
  Transmission Date: 20150821
  Serious: Yes (Death, Hospitalization)
  Sender: FDA-Public Use
  Company Number: ES-AMGEN-ESPCT2014044205

PATIENT
  Age: 85 Year
  Sex: Female

DRUGS (4)
  1. PANITUMUMAB [Suspect]
     Active Substance: PANITUMUMAB
     Indication: PRODUCT USED FOR UNKNOWN INDICATION
     Dosage: 378 MG, Q3WK
     Route: 042
     Dates: start: 20140522, end: 20140522
  2. OMEPRAZOLE. [Concomitant]
     Active Substance: OMEPRAZOLE
     Dosage: 20 MG, QD
     Route: 048
     Dates: start: 2014, end: 20140612
  3. XELODA [Concomitant]
     Active Substance: CAPECITABINE
  4. CAPECITABINE. [Concomitant]
     Active Substance: CAPECITABINE
     Dosage: 2300 MG, QD
     Route: 048
     Dates: start: 20140522, end: 20140609

REACTIONS (2)
  - Diarrhoea [Fatal]
  - Urinary tract infection [Fatal]

NARRATIVE: CASE EVENT DATE: 20140609
